FAERS Safety Report 16373842 (Version 3)
Quarter: 2019Q3

REPORT INFORMATION
  Report Type: Report from Study
  Country: KR (occurrence: KR)
  Receive Date: 20190530
  Receipt Date: 20190719
  Transmission Date: 20191004
  Serious: Yes (Death, Hospitalization, Other)
  Sender: FDA-Public Use
  Company Number: KR-ASTRAZENECA-2019SE69802

PATIENT
  Age: 773 Month
  Sex: Male

DRUGS (14)
  1. DESOXIMETASONE. [Concomitant]
     Active Substance: DESOXIMETASONE
     Indication: PRURITUS
     Dosage: 20.0ML AS REQUIRED
     Route: 061
     Dates: start: 20190418
  2. MAGNESIUM HYDROXIDE. [Concomitant]
     Active Substance: MAGNESIUM HYDROXIDE
     Indication: HYPOMAGNESAEMIA
     Route: 048
     Dates: start: 20190430, end: 20190506
  3. DESONIDE. [Concomitant]
     Active Substance: DESONIDE
     Indication: PRURITUS
     Dosage: 120.0ML AS REQUIRED
     Route: 061
     Dates: start: 20190418
  4. MOSAPRIDE [Concomitant]
     Active Substance: MOSAPRIDE
     Indication: GASTRITIS
     Route: 048
     Dates: start: 20190430, end: 20190506
  5. GODEX [Concomitant]
     Indication: ASPARTATE AMINOTRANSFERASE INCREASED
     Dosage: 1 CAPSULE TID
     Route: 048
     Dates: start: 20190430, end: 20190514
  6. CHLORHEXIDINE [Concomitant]
     Active Substance: CHLORHEXIDINE
     Indication: DRY MOUTH
     Dosage: 100.0ML AS REQUIRED
     Route: 050
     Dates: start: 20190419
  7. MEDI4736 [Suspect]
     Active Substance: DURVALUMAB
     Indication: TRANSITIONAL CELL CANCER OF RENAL PELVIS AND URETER METASTATIC
     Route: 042
     Dates: start: 20190423, end: 20190423
  8. GEMCITABINE. [Suspect]
     Active Substance: GEMCITABINE
     Indication: TRANSITIONAL CELL CANCER OF RENAL PELVIS AND URETER METASTATIC
     Route: 065
     Dates: start: 20190423, end: 20190423
  9. GODEX [Concomitant]
     Indication: ALANINE AMINOTRANSFERASE INCREASED
     Dosage: 1 CAPSULE TID
     Route: 048
     Dates: start: 20190430, end: 20190514
  10. RABEPRAZOLE [Concomitant]
     Active Substance: RABEPRAZOLE
     Indication: GASTRITIS
     Route: 048
     Dates: start: 20190430, end: 20190506
  11. SILYMARIN [Concomitant]
     Active Substance: DIETARY SUPPLEMENT\HERBALS\MILK THISTLE
     Indication: ALANINE AMINOTRANSFERASE INCREASED
     Route: 048
     Dates: start: 20190430, end: 20190506
  12. CISPLATIN. [Suspect]
     Active Substance: CISPLATIN
     Indication: TRANSITIONAL CELL CANCER OF RENAL PELVIS AND URETER METASTATIC
     Route: 065
     Dates: start: 20190423, end: 20190423
  13. GEMCITABINE. [Suspect]
     Active Substance: GEMCITABINE
     Indication: TRANSITIONAL CELL CANCER OF RENAL PELVIS AND URETER METASTATIC
     Route: 065
     Dates: start: 20190528, end: 20190528
  14. DIFLUCORTOLONE [Concomitant]
     Active Substance: DIFLUCORTOLONE
     Indication: PRURITUS
     Dosage: 10.0G AS REQUIRED
     Route: 061
     Dates: start: 20190418

REACTIONS (1)
  - Drug-induced liver injury [Fatal]

NARRATIVE: CASE EVENT DATE: 20190507
